FAERS Safety Report 4841308-5 (Version None)
Quarter: 2005Q4

REPORT INFORMATION
  Report Type: 
  Country: None (occurrence: None)
  Receive Date: 20051130
  Receipt Date: 20051109
  Transmission Date: 20060501
  Serious: Yes (Death, Hospitalization)
  Sender: FDA-Public Use
  Company Number: US-GLAXOSMITHKLINE-A0581483A

PATIENT
  Age: 67 Year
  Sex: Female
  Weight: 94.5 kg

DRUGS (2)
  1. TOPOTECAN [Suspect]
     Indication: ENDOMETRIAL CANCER
     Dosage: 3MGM2 CYCLIC
     Route: 042
     Dates: start: 20051010
  2. COUMADIN [Suspect]
     Dosage: 1MG PER DAY
     Route: 048
     Dates: start: 20051006

REACTIONS (3)
  - DYSPNOEA [None]
  - RECTAL HAEMORRHAGE [None]
  - RENAL FAILURE [None]
